FAERS Safety Report 6371178-8 (Version None)
Quarter: 2009Q3

REPORT INFORMATION
  Report Type: 
  Country: None (occurrence: None)
  Receive Date: 20090923
  Receipt Date: 20070717
  Transmission Date: 20100115
  Serious: Yes (Other)
  Sender: FDA-Public Use
  Company Number: US-ASTRAZENECA-2007UW05946

PATIENT
  Age: 17663 Day
  Sex: Female
  Weight: 103 kg

DRUGS (16)
  1. SEROQUEL [Suspect]
     Indication: BIPOLAR DISORDER
     Route: 048
     Dates: start: 20010101, end: 20050101
  2. SEROQUEL [Suspect]
     Indication: DEPRESSION
     Route: 048
     Dates: start: 20010101, end: 20050101
  3. SEROQUEL [Suspect]
     Route: 048
     Dates: start: 20021020
  4. SEROQUEL [Suspect]
     Route: 048
     Dates: start: 20021020
  5. REMERON [Concomitant]
     Route: 048
     Dates: start: 20010827
  6. VALIUM [Concomitant]
     Dosage: 5MG-10MG
     Route: 048
  7. HYDRODIURIL [Concomitant]
     Route: 048
     Dates: start: 20010827
  8. LORTAB [Concomitant]
     Dosage: 7.5MG-50MG
     Route: 048
     Dates: start: 20011029
  9. PAXIL [Concomitant]
     Route: 048
     Dates: start: 20021217
  10. PROTONIX [Concomitant]
     Route: 048
     Dates: start: 20001128
  11. REGLAN [Concomitant]
     Route: 048
     Dates: start: 20021217
  12. TOPROL-XL [Concomitant]
     Route: 048
     Dates: start: 20001128
  13. TRAZODONE [Concomitant]
     Route: 048
  14. WELLBUTRIN [Concomitant]
     Route: 048
     Dates: start: 20021020
  15. DETROL [Concomitant]
     Route: 048
  16. DOXEPIN HCL [Concomitant]
     Dosage: 25MG, 2 AT BED TIME
     Route: 048

REACTIONS (2)
  - DIABETES MELLITUS INADEQUATE CONTROL [None]
  - TYPE 2 DIABETES MELLITUS [None]
